FAERS Safety Report 23752886 (Version 1)
Quarter: 2024Q2

REPORT INFORMATION
  Report Type: Spontaneous
  Country: US (occurrence: US)
  Receive Date: 20240417
  Receipt Date: 20240417
  Transmission Date: 20240716
  Serious: Yes (Death)
  Sender: FDA-Public Use
  Company Number: US-TPU-TPU-2024-00141

PATIENT
  Age: 87 Year
  Sex: Male

DRUGS (1)
  1. LIDOCAINE [Suspect]
     Active Substance: LIDOCAINE
     Indication: Back pain

REACTIONS (2)
  - Death [Fatal]
  - Prescription drug used without a prescription [Unknown]

NARRATIVE: CASE EVENT DATE: 20220213
